FAERS Safety Report 21838255 (Version 4)
Quarter: 2023Q2

REPORT INFORMATION
  Report Type: Spontaneous
  Country: US (occurrence: US)
  Receive Date: 20230109
  Receipt Date: 20230407
  Transmission Date: 20230722
  Serious: No
  Sender: FDA-Public Use
  Company Number: US-PFIZER INC-PV202300003357

PATIENT
  Age: 73 Year
  Sex: Female
  Weight: 114.3 kg

DRUGS (2)
  1. IBRANCE [Suspect]
     Active Substance: PALBOCICLIB
     Indication: Breast cancer
     Dosage: 21 DAYS ON 7 DAYS OFF
  2. FASLODEX [Concomitant]
     Active Substance: FULVESTRANT
     Dosage: EVERY 28 DAYS

REACTIONS (1)
  - Confusional state [Unknown]
